FAERS Safety Report 4764379-3 (Version None)
Quarter: 2005Q3

REPORT INFORMATION
  Report Type: 
  Country: None (occurrence: None)
  Receive Date: 20050907
  Receipt Date: 20050823
  Transmission Date: 20060218
  Serious: Yes (Hospitalization)
  Sender: FDA-Public Use
  Company Number: 2005P1000251

PATIENT
  Age: 73 Year

DRUGS (2)
  1. RETEVASE [Suspect]
     Indication: ACUTE MYOCARDIAL INFARCTION
     Dosage: IV
     Route: 042
  2. ABICIXIMAB (ABICIXIMAB) [Suspect]
     Indication: ACUTE MYOCARDIAL INFARCTION
     Dosage: IV
     Route: 042

REACTIONS (6)
  - CORONARY ARTERY SURGERY [None]
  - HAEMORRHAGIC STROKE [None]
  - MITRAL VALVE REPAIR [None]
  - PROCEDURAL COMPLICATION [None]
  - RENAL FAILURE [None]
  - TRICUSPID VALVE REPAIR [None]
